FAERS Safety Report 10251796 (Version 1)
Quarter: 2014Q2

REPORT INFORMATION
  Report Type: Spontaneous
  Country: FR (occurrence: FR)
  Receive Date: 20140623
  Receipt Date: 20140623
  Transmission Date: 20141212
  Serious: Yes (Hospitalization)
  Sender: FDA-Public Use
  Company Number: FR-009507513-1406FRA007953

PATIENT
  Age: 90 Year
  Sex: Female

DRUGS (2)
  1. ADROVANCE [Suspect]
     Indication: OSTEOPOROSIS
     Dosage: UNK
     Route: 048
     Dates: start: 2006
  2. BONVIVA [Suspect]
     Dosage: UNK
     Dates: end: 2009

REACTIONS (1)
  - Osteonecrosis [Unknown]
